FAERS Safety Report 13150459 (Version 2)
Quarter: 2017Q1

REPORT INFORMATION
  Report Type: Report from Study
  Country: US (occurrence: US)
  Receive Date: 20170125
  Receipt Date: 20170213
  Transmission Date: 20170428
  Serious: Yes (Hospitalization)
  Sender: FDA-Public Use
  Company Number: US-PFIZER INC-2016579341

PATIENT
  Age: 47 Year
  Sex: Male
  Weight: 86 kg

DRUGS (6)
  1. FLUOROURACIL. [Suspect]
     Active Substance: FLUOROURACIL
     Indication: OESOPHAGEAL ADENOCARCINOMA
     Dosage: 5150 MG, ONCE EVERY 2 WEEKS
     Route: 042
     Dates: start: 20160822
  2. OXALIPLATIN. [Suspect]
     Active Substance: OXALIPLATIN
     Dosage: 125 MG, CYCLIC
     Route: 042
     Dates: start: 20161031, end: 20161031
  3. MSB0010718C [Suspect]
     Active Substance: AVELUMAB
     Indication: OESOPHAGEAL ADENOCARCINOMA
     Dosage: 772 MG, CYCLIC, EVERY 2 WEEKS
     Route: 042
     Dates: start: 20161128
  4. LEUCOVORIN. [Concomitant]
     Active Substance: LEUCOVORIN
     Indication: OESOPHAGEAL ADENOCARCINOMA
     Dosage: 395 MG, ONCE EVERY 2 WEEKS
     Route: 042
     Dates: start: 20160822, end: 20161031
  5. OXALIPLATIN. [Suspect]
     Active Substance: OXALIPLATIN
     Indication: OESOPHAGEAL ADENOCARCINOMA
     Dosage: 170 MG, CYCLIC
     Route: 042
     Dates: start: 20160822
  6. FLUOROURACIL. [Suspect]
     Active Substance: FLUOROURACIL
     Dosage: 3860 MG, ONCE EVERY 2 WEEKS
     Route: 042
     Dates: start: 20161031, end: 20161031

REACTIONS (1)
  - Pneumonia aspiration [Not Recovered/Not Resolved]

NARRATIVE: CASE EVENT DATE: 20161130
